FAERS Safety Report 18731485 (Version 2)
Quarter: 2021Q1

REPORT INFORMATION
  Report Type: Report from Study
  Country: US (occurrence: US)
  Receive Date: 20210112
  Receipt Date: 20210331
  Transmission Date: 20210419
  Serious: Yes (Death, Other)
  Sender: FDA-Public Use
  Company Number: US-BAYER-2021-013756

PATIENT
  Sex: Male
  Weight: 72.56 kg

DRUGS (19)
  1. CEPHALEXIN [CEFALEXIN] [Concomitant]
     Active Substance: CEPHALEXIN
  2. STIVARGA [Suspect]
     Active Substance: REGORAFENIB
     Indication: COLORECTAL CANCER METASTATIC
     Dosage: DAILY DOSE 160 MG FOR 21 OF 28 DAYS
     Route: 048
     Dates: start: 20201221
  3. LONSURF [Suspect]
     Active Substance: TIPIRACIL HYDROCHLORIDE\TRIFLURIDINE
     Indication: COLORECTAL CANCER METASTATIC
     Dosage: 30 MG, BID
     Route: 048
     Dates: start: 20200729, end: 2020
  4. HALOPERIDOL. [Concomitant]
     Active Substance: HALOPERIDOL
  5. OXYCONTIN [Concomitant]
     Active Substance: OXYCODONE HYDROCHLORIDE
  6. FUROSEMIDE. [Concomitant]
     Active Substance: FUROSEMIDE
  7. LONSURF [Suspect]
     Active Substance: TIPIRACIL HYDROCHLORIDE\TRIFLURIDINE
     Indication: COLORECTAL CANCER METASTATIC
     Dosage: 40 MG, BID
     Route: 048
     Dates: start: 2020, end: 2020
  8. PHENAZOPYRIDINE. [Concomitant]
     Active Substance: PHENAZOPYRIDINE
  9. STIVARGA [Suspect]
     Active Substance: REGORAFENIB
     Indication: COLORECTAL CANCER METASTATIC
     Dosage: 80 MG DAILY
     Route: 048
     Dates: start: 2020, end: 2020
  10. STIVARGA [Suspect]
     Active Substance: REGORAFENIB
     Indication: RECTAL CANCER
     Dosage: 120 MG DAILY AT DAY 7
     Route: 048
     Dates: start: 2020, end: 2020
  11. STIVARGA [Suspect]
     Active Substance: REGORAFENIB
     Indication: COLORECTAL CANCER METASTATIC
     Dosage: 80 MG DAILY
     Route: 048
     Dates: start: 2020
  12. DOXYCYCLINE. [Concomitant]
     Active Substance: DOXYCYCLINE
  13. OMEPRAZOLE. [Concomitant]
     Active Substance: OMEPRAZOLE
  14. PROMETHAZINE [Concomitant]
     Active Substance: PROMETHAZINE HYDROCHLORIDE
  15. OXYCODONE [Concomitant]
     Active Substance: OXYCODONE
  16. PROCHLORPERAZINE. [Concomitant]
     Active Substance: PROCHLORPERAZINE
  17. MIRTAZAPINE. [Concomitant]
     Active Substance: MIRTAZAPINE
  18. ENOXAPARIN [Concomitant]
     Active Substance: ENOXAPARIN
  19. LACTULOSE. [Concomitant]
     Active Substance: LACTULOSE

REACTIONS (4)
  - Laboratory test abnormal [None]
  - Off label use [None]
  - Death [Fatal]
  - Colorectal cancer metastatic [None]

NARRATIVE: CASE EVENT DATE: 2020
